FAERS Safety Report 8860352 (Version 1)
Quarter: 2012Q4

REPORT INFORMATION
  Report Type: 
  Country: US (occurrence: US)
  Receive Date: 20121025
  Receipt Date: 20121025
  Transmission Date: 20130627
  Serious: No
  Sender: FDA-Public Use
  Company Number: US-PFIZER INC-2012265407

PATIENT
  Age: 65 Year
  Sex: Female

DRUGS (7)
  1. SUTENT [Suspect]
     Dosage: 50 mg, UNK
     Dates: start: 20121008
  2. LANSOPRAZOLE [Concomitant]
     Dosage: UNK
  3. TERAZOSIN HYDROCHLORIDE [Concomitant]
     Dosage: UNK
  4. SINGULAIR [Concomitant]
     Dosage: UNK
  5. SPIRIVA [Concomitant]
     Dosage: UNK
  6. LEVOTHYROXINE SODIUM [Concomitant]
     Dosage: UNK
  7. TOPROL XL [Concomitant]
     Dosage: UNK

REACTIONS (2)
  - Paraesthesia [Unknown]
  - Abdominal discomfort [Unknown]
